FAERS Safety Report 9090156 (Version 1)
Quarter: 2013Q1

REPORT INFORMATION
  Report Type: Spontaneous
  Country: FR (occurrence: FR)
  Receive Date: 20130131
  Receipt Date: 20130131
  Transmission Date: 20140127
  Serious: Yes (Death)
  Sender: FDA-Public Use
  Company Number: FR-SANOFI-AVENTIS-2013SA008466

PATIENT
  Age: 62 Year
  Sex: Female

DRUGS (15)
  1. GRANOCYTE [Suspect]
     Indication: NEUTROPENIA
     Route: 058
     Dates: start: 201210
  2. OXALIPLATIN [Suspect]
     Indication: LYMPHOMA
     Route: 042
     Dates: start: 201208
  3. MOZOBIL [Suspect]
     Indication: HAEMATOPOIETIC STEM CELL MOBILISATION
     Route: 058
     Dates: start: 20121004, end: 20121004
  4. CYTARABINE [Concomitant]
  5. ONDANSETRON [Concomitant]
  6. DEXAMETHASONE [Concomitant]
  7. AUGMENTIN [Concomitant]
     Dates: start: 20120928
  8. OFLOXACIN [Concomitant]
     Dates: start: 20120928
  9. BACTRIM [Concomitant]
  10. VALACICLOVIR [Concomitant]
  11. EPOETIN ALFA [Concomitant]
  12. DAFLON [Concomitant]
  13. INEXIUM [Concomitant]
  14. ACUPAN [Concomitant]
  15. ATARAX [Concomitant]

REACTIONS (4)
  - Abdominal pain [Fatal]
  - Constipation [Fatal]
  - Ascites [Fatal]
  - Hepatorenal syndrome [Fatal]
